FAERS Safety Report 22638878 (Version 6)
Quarter: 2025Q4

REPORT INFORMATION
  Report Type: Report from Study
  Country: US (occurrence: US)
  Receive Date: 20230626
  Receipt Date: 20251126
  Transmission Date: 20260117
  Serious: Yes (Hospitalization)
  Sender: BOEHRINGER INGELHEIM
  Company Number: US-BoehringerIngelheim-2023-BI-221502

PATIENT
  Age: 77 Year
  Sex: Female

DRUGS (3)
  1. OFEV [Suspect]
     Active Substance: NINTEDANIB
     Indication: Idiopathic pulmonary fibrosis
     Dates: start: 20250221
  2. OFEV [Suspect]
     Active Substance: NINTEDANIB
     Indication: Dyspnoea
  3. OFEV [Suspect]
     Active Substance: NINTEDANIB

REACTIONS (17)
  - Abdominal pain upper [Unknown]
  - Iron deficiency [Unknown]
  - Gastric haemorrhage [Unknown]
  - Back pain [Unknown]
  - Headache [Unknown]
  - Arthralgia [Unknown]
  - Diarrhoea [Unknown]
  - Nausea [Unknown]
  - Weight decreased [Unknown]
  - Dyspnoea [Unknown]
  - Oropharyngeal pain [Unknown]
  - Confusional state [Unknown]
  - Gait disturbance [Unknown]
  - Vomiting [Unknown]
  - Respiration abnormal [Unknown]
  - Fatigue [Unknown]
  - Impaired quality of life [Unknown]
